APPROVED DRUG PRODUCT: SIROLIMUS
Active Ingredient: SIROLIMUS
Strength: 1MG/ML
Dosage Form/Route: SOLUTION;ORAL
Application: A216728 | Product #001 | TE Code: AA
Applicant: MSN LABORATORIES PRIVATE LTD
Approved: Jan 19, 2023 | RLD: No | RS: No | Type: RX